FAERS Safety Report 7656002-5 (Version None)
Quarter: 2011Q3

REPORT INFORMATION
  Report Type: 
  Country: None (occurrence: None)
  Receive Date: 20110804
  Receipt Date: 20110726
  Transmission Date: 20111222
  Serious: Yes (Hospitalization)
  Sender: FDA-Public Use
  Company Number: CA-JNJFOC-20110412336

PATIENT
  Sex: Female
  Weight: 62.6 kg

DRUGS (2)
  1. REMICADE [Suspect]
     Indication: PSORIATIC ARTHROPATHY
     Route: 042
     Dates: start: 20090601
  2. REMICADE [Suspect]
     Route: 042
     Dates: start: 20101214

REACTIONS (2)
  - RENAL DISORDER [None]
  - DEHYDRATION [None]
